FAERS Safety Report 8770108 (Version 2)
Quarter: 2012Q4

REPORT INFORMATION
  Report Type: 
  Country: SE (occurrence: SE)
  Receive Date: 20120904
  Receipt Date: 20120924
  Transmission Date: 20130627
  Serious: Yes (Hospitalization, Other)
  Sender: FDA-Public Use
  Company Number: SE-AMGEN-SWECT2011006321

PATIENT
  Age: 56 Year
  Sex: Female
  Weight: 60 kg

DRUGS (6)
  1. ETANERCEPT [Suspect]
     Indication: RHEUMATOID ARTHRITIS
     Dosage: 50 mg, weekly
     Route: 058
     Dates: start: 20100314, end: 20100509
  2. ETANERCEPT [Suspect]
     Dosage: 25 mg, weekly
     Route: 058
     Dates: start: 20100518, end: 20110117
  3. METHOTREXATE [Concomitant]
     Indication: RHEUMATOID ARTHRITIS
     Dosage: 2.5 mg, UNK
     Dates: start: 20071127
  4. CALCICHEW-D3 [Concomitant]
     Indication: OSTEOPOROSIS
     Dosage: 500 mg, 400IU
     Dates: start: 20061024
  5. PREDNISOLON                        /00016201/ [Concomitant]
     Indication: RHEUMATOID ARTHRITIS
     Dosage: 2.5 mg, 1x/day
     Dates: start: 20071127
  6. FOLACIN                            /00198401/ [Concomitant]
     Indication: PROPHYLAXIS
     Dosage: 5 mg, UNK
     Dates: start: 20061024

REACTIONS (1)
  - Endometritis [Recovered/Resolved]
